FAERS Safety Report 7921576-3 (Version None)
Quarter: 2011Q4

REPORT INFORMATION
  Report Type: 
  Country: None (occurrence: None)
  Receive Date: 20111117
  Receipt Date: 20111115
  Transmission Date: 20120403
  Serious: Yes (Other)
  Sender: FDA-Public Use
  Company Number: PHEH2010US03463

PATIENT
  Sex: Female

DRUGS (41)
  1. LANTUS [Concomitant]
     Dosage: 70 U, QD
     Route: 058
  2. NARCAN [Concomitant]
     Dosage: 0.04 MG, UNK
     Route: 042
  3. METHADONE HCL [Concomitant]
     Dosage: 20 MG, TID
  4. LOPERAMIDE HCL [Concomitant]
     Dosage: 2 DF, UNK
     Route: 048
  5. ALBUTEROL [Concomitant]
  6. PENTASA [Concomitant]
  7. SIMVASTATIN [Concomitant]
  8. COLACE [Concomitant]
     Dosage: 100 MG, BID
     Route: 048
  9. AVELOX [Concomitant]
     Dosage: 400 MG, QD
     Route: 042
  10. UNASYN [Concomitant]
     Dosage: 3 G, Q6H
     Route: 042
  11. MOXIFLOXACIN [Concomitant]
     Dosage: 400 MG, QD
     Route: 042
  12. FLOVENT [Concomitant]
  13. VANCOMYCIN [Concomitant]
  14. WELLBUTRIN [Concomitant]
  15. TRIAMTERENE AND HYDROCHLOROTHIAZIDE [Concomitant]
  16. ASPIRIN [Concomitant]
     Dosage: 81 MG, UNK
     Route: 048
  17. COMBIVENT [Concomitant]
  18. NICOTINE [Concomitant]
     Dosage: 21 MG, QD
  19. VICODIN [Concomitant]
  20. TARCEVA [Concomitant]
  21. HUMULIN R [Concomitant]
  22. ZOCOR [Concomitant]
     Dosage: 10 MG, QD
  23. NEURONTIN [Concomitant]
  24. PERCOCET [Concomitant]
  25. ATIVAN [Concomitant]
     Dosage: 2 DF, QHS
     Route: 048
  26. OPIUM ^DAK^ [Suspect]
  27. ZESTRIL [Concomitant]
  28. PROTONIX [Concomitant]
  29. SPIRIVA [Concomitant]
  30. ZOMETA [Suspect]
     Indication: OSTEOPENIA
     Dates: start: 20060101
  31. ASACOL [Concomitant]
  32. METFORMIN HCL [Concomitant]
     Dosage: 1000 MG, BID
     Route: 048
  33. BENADRYL [Concomitant]
     Dosage: 25 MG, Q6H, PRN
     Route: 048
  34. GLUCOPHAGE [Concomitant]
     Dosage: 2 G, QD
  35. AUGMENTIN [Concomitant]
  36. DEMEROL [Concomitant]
  37. DILAUDID [Concomitant]
  38. REGLAN [Concomitant]
     Dosage: 5 MG, Q6H
     Route: 048
  39. LIDOCAINE [Concomitant]
     Dosage: 1 DF, Q12H
     Route: 061
  40. LISINOPRIL [Concomitant]
     Dosage: 5 MG, BID
     Route: 048
  41. BENADRYL HCL [Concomitant]

REACTIONS (66)
  - QUALITY OF LIFE DECREASED [None]
  - ATELECTASIS [None]
  - GASTROOESOPHAGEAL REFLUX DISEASE [None]
  - CLAUSTROPHOBIA [None]
  - CARDIAC FAILURE CONGESTIVE [None]
  - BONE LOSS [None]
  - DIARRHOEA HAEMORRHAGIC [None]
  - INTERVERTEBRAL DISC DEGENERATION [None]
  - DRUG WITHDRAWAL SYNDROME [None]
  - HALLUCINATION [None]
  - VISION BLURRED [None]
  - OSTEOLYSIS [None]
  - PROTEINURIA [None]
  - OBSTRUCTIVE AIRWAYS DISORDER [None]
  - PLEURAL EFFUSION [None]
  - COLITIS ULCERATIVE [None]
  - GINGIVITIS [None]
  - PURULENT DISCHARGE [None]
  - INTERVERTEBRAL DISC SPACE NARROWING [None]
  - LEUKOCYTOSIS [None]
  - FATIGUE [None]
  - STREPTOCOCCAL INFECTION [None]
  - ANXIETY [None]
  - ACTIVITIES OF DAILY LIVING IMPAIRED [None]
  - INTERVERTEBRAL DISC DISORDER [None]
  - EXPOSED BONE IN JAW [None]
  - OSTEITIS [None]
  - INTERVERTEBRAL DISC PROTRUSION [None]
  - HAEMATURIA [None]
  - DYSLIPIDAEMIA [None]
  - CHEST PAIN [None]
  - PAIN [None]
  - DEEP VEIN THROMBOSIS [None]
  - TOOTH LOSS [None]
  - TACHYCARDIA [None]
  - EXOPHTHALMOS [None]
  - MASTICATION DISORDER [None]
  - DEFORMITY [None]
  - LUNG NEOPLASM [None]
  - DIVERTICULITIS [None]
  - ADRENAL DISORDER [None]
  - ILEUS [None]
  - DIARRHOEA [None]
  - DIZZINESS [None]
  - IMPAIRED GASTRIC EMPTYING [None]
  - CROHN'S DISEASE [None]
  - ANAEMIA [None]
  - PRIMARY SEQUESTRUM [None]
  - OSTEOPOROSIS [None]
  - PALPITATIONS [None]
  - DYSPNOEA [None]
  - OEDEMA [None]
  - OSTEONECROSIS OF JAW [None]
  - EMOTIONAL DISTRESS [None]
  - CHRONIC SINUSITIS [None]
  - SLEEP APNOEA SYNDROME [None]
  - CHRONIC OBSTRUCTIVE PULMONARY DISEASE [None]
  - HYPERTENSION [None]
  - MUSCLE STRAIN [None]
  - ADENOCARCINOMA [None]
  - LYMPHADENOPATHY [None]
  - HEPATIC STEATOSIS [None]
  - PERIODONTITIS [None]
  - HIATUS HERNIA [None]
  - OESOPHAGITIS [None]
  - DUODENITIS [None]
